FAERS Safety Report 8433180-1 (Version None)
Quarter: 2012Q2

REPORT INFORMATION
  Report Type: 
  Country: None (occurrence: None)
  Receive Date: 20120613
  Receipt Date: 20120605
  Transmission Date: 20120825
  Serious: Yes (Other)
  Sender: FDA-Public Use
  Company Number: US-GLAXOSMITHKLINE-A0981009A

PATIENT
  Age: 13 Year
  Sex: Female
  Weight: 46.4 kg

DRUGS (2)
  1. LAMICTAL [Suspect]
     Indication: CONVULSION
     Dosage: 50MGD PER DAY
     Route: 048
     Dates: start: 20120412, end: 20120508
  2. DILANTIN [Suspect]
     Indication: CONVULSION
     Dosage: 300MGD PER DAY
     Route: 048
     Dates: start: 20120424, end: 20120514

REACTIONS (10)
  - CONFUSIONAL STATE [None]
  - AMNESIA [None]
  - ERYTHEMA [None]
  - ANTICONVULSANT DRUG LEVEL ABOVE THERAPEUTIC [None]
  - BRAIN STEM STROKE [None]
  - POOR QUALITY SLEEP [None]
  - DIPLOPIA [None]
  - CONVULSION [None]
  - HEADACHE [None]
  - MALAISE [None]
